FAERS Safety Report 19389500 (Version 5)
Quarter: 2021Q3

REPORT INFORMATION
  Report Type: Report from Study
  Country: TR (occurrence: TR)
  Receive Date: 20210608
  Receipt Date: 20210720
  Transmission Date: 20211014
  Serious: Yes (Death, Life-Threatening, Hospitalization, Other)
  Sender: FDA-Public Use
  Company Number: NVSC2021TR128428

PATIENT
  Age: 70 Year
  Sex: Male
  Weight: 72 kg

DRUGS (5)
  1. TAZOBACTAM [Concomitant]
     Active Substance: TAZOBACTAM
     Indication: PRODUCT USED FOR UNKNOWN INDICATION
     Dosage: 4.5 MG, TID
     Route: 065
     Dates: start: 20210604
  2. CLEXANE [Concomitant]
     Active Substance: ENOXAPARIN SODIUM
     Indication: PRODUCT USED FOR UNKNOWN INDICATION
     Dosage: 0.8, 1X1
     Route: 065
     Dates: start: 20210604
  3. INC280 [Suspect]
     Active Substance: CAPMATINIB
     Indication: LUNG CANCER METASTATIC
     Dosage: 400 UNK, BID (2X 400)
     Route: 048
     Dates: start: 20210531, end: 20210603
  4. LASIX [Concomitant]
     Active Substance: FUROSEMIDE
     Indication: PRODUCT USED FOR UNKNOWN INDICATION
     Dosage: 20 MG, BID
     Route: 065
     Dates: start: 20210604
  5. PREDUAL [Concomitant]
     Indication: PRODUCT USED FOR UNKNOWN INDICATION
     Dosage: 80 MG
     Route: 065
     Dates: start: 20210604

REACTIONS (20)
  - Malignant neoplasm progression [Fatal]
  - Blood fibrinogen increased [Unknown]
  - Dyspnoea [Fatal]
  - Blood urea increased [Unknown]
  - Procalcitonin decreased [Unknown]
  - Lung cancer metastatic [Fatal]
  - Haemoglobin decreased [Unknown]
  - Haematocrit decreased [Unknown]
  - Interstitial lung disease [Fatal]
  - Red blood cell count decreased [Unknown]
  - Lymphocyte count decreased [Unknown]
  - Neutrophil count increased [Unknown]
  - Fatigue [Fatal]
  - C-reactive protein increased [Unknown]
  - Fibrin D dimer increased [Unknown]
  - Lung infiltration [Unknown]
  - Platelet count decreased [Unknown]
  - Monocyte count decreased [Unknown]
  - Red cell distribution width increased [Unknown]
  - Metastases to spleen [Fatal]

NARRATIVE: CASE EVENT DATE: 20210604
